FAERS Safety Report 21762925 (Version 1)
Quarter: 2022Q4

REPORT INFORMATION
  Report Type: Spontaneous
  Country: US (occurrence: US)
  Receive Date: 20221221
  Receipt Date: 20221221
  Transmission Date: 20230112
  Serious: No
  Sender: FDA-Public Use
  Company Number: US-MYLANLABS-2022M1139473

PATIENT
  Sex: Female

DRUGS (2)
  1. LYRICA [Interacting]
     Active Substance: PREGABALIN
     Indication: Product used for unknown indication
     Dosage: UNK UNK, HS, EVENING HOURS
     Route: 065
  2. NURTEC ODT [Interacting]
     Active Substance: RIMEGEPANT SULFATE
     Indication: Product used for unknown indication
     Dosage: UNK UNK, HS, EVENING HOURS
     Route: 065

REACTIONS (6)
  - Gallbladder disorder [Unknown]
  - Panic attack [Unknown]
  - Drug hypersensitivity [Unknown]
  - Heart rate increased [Unknown]
  - Adverse drug reaction [Unknown]
  - Drug interaction [Unknown]
